FAERS Safety Report 12903948 (Version 1)
Quarter: 2016Q4

REPORT INFORMATION
  Report Type: Spontaneous
  Country: US (occurrence: US)
  Receive Date: 20161102
  Receipt Date: 20161102
  Transmission Date: 20170207
  Serious: No
  Sender: FDA-Public Use
  Company Number: US-GLAXOSMITHKLINE-US2016160627

PATIENT
  Age: 45 Year
  Sex: Female

DRUGS (4)
  1. ZITHROMAX [Concomitant]
     Active Substance: AZITHROMYCIN DIHYDRATE
  2. FISH OIL [Concomitant]
     Active Substance: FISH OIL
  3. MEPRON [Suspect]
     Active Substance: ATOVAQUONE
     Indication: LYME DISEASE
  4. MEPRON [Suspect]
     Active Substance: ATOVAQUONE
     Indication: BABESIOSIS
     Dosage: UNK
     Route: 048
     Dates: start: 20161027

REACTIONS (3)
  - Dizziness [Unknown]
  - Fatigue [Recovered/Resolved]
  - Limb discomfort [Unknown]

NARRATIVE: CASE EVENT DATE: 20161027
